FAERS Safety Report 11070179 (Version 2)
Quarter: 2015Q2

REPORT INFORMATION
  Report Type: Spontaneous
  Country: LU (occurrence: LU)
  Receive Date: 20150427
  Receipt Date: 20150513
  Transmission Date: 20150821
  Serious: Yes (Hospitalization, Other)
  Sender: FDA-Public Use
  Company Number: LU-ASTRAZENECA-2015SE37918

PATIENT
  Sex: Male

DRUGS (4)
  1. XYLOCA?NE [Suspect]
     Active Substance: LIDOCAINE HYDROCHLORIDE
     Indication: INTERVERTEBRAL DISC DEGENERATION
     Route: 024
     Dates: start: 20150414, end: 20150414
  2. XYLOCA?NE [Suspect]
     Active Substance: LIDOCAINE HYDROCHLORIDE
     Indication: INTERVERTEBRAL DISC DEGENERATION
     Route: 037
  3. FELDENE [Suspect]
     Active Substance: PIROXICAM
     Indication: INTERVERTEBRAL DISC DEGENERATION
     Route: 024
     Dates: start: 20150414, end: 20150414
  4. FELDENE [Suspect]
     Active Substance: PIROXICAM
     Indication: INTERVERTEBRAL DISC DEGENERATION
     Route: 037

REACTIONS (2)
  - Paraplegia [Not Recovered/Not Resolved]
  - Drug administration error [Unknown]
